FAERS Safety Report 13168759 (Version 1)
Quarter: 2017Q1

REPORT INFORMATION
  Report Type: Spontaneous
  Country: US (occurrence: US)
  Receive Date: 20170131
  Receipt Date: 20170131
  Transmission Date: 20170428
  Serious: No
  Sender: FDA-Public Use
  Company Number: US-AMGEN-USASP2017014173

PATIENT
  Age: 43 Year
  Sex: Male

DRUGS (1)
  1. ENBREL [Suspect]
     Active Substance: ETANERCEPT
     Indication: PSORIASIS
     Dosage: 50 MG, 2 TIMES/WK
     Route: 065
     Dates: start: 201612

REACTIONS (6)
  - Nausea [Recovered/Resolved]
  - Respiratory tract congestion [Recovering/Resolving]
  - Dyspepsia [Recovered/Resolved]
  - Thirst [Unknown]
  - Wrong technique in product usage process [Unknown]
  - Injection site reaction [Unknown]

NARRATIVE: CASE EVENT DATE: 201612
